FAERS Safety Report 4314009-X (Version None)
Quarter: 2004Q1

REPORT INFORMATION
  Report Type: 
  Country: None (occurrence: None)
  Receive Date: 20040305
  Receipt Date: 20040218
  Transmission Date: 20041129
  Serious: Yes (Hospitalization)
  Sender: FDA-Public Use
  Company Number: DSA_24032_2004

PATIENT
  Age: 68 Year
  Sex: Male

DRUGS (9)
  1. BI-TILDIEM [Suspect]
     Dosage: 180 MG Q DAY PO
     Route: 048
  2. FERROUS SULFATE TAB [Suspect]
     Dosage: 80 MG PO
     Route: 048
     Dates: end: 19991213
  3. ARTANE [Suspect]
     Dosage: 2 MG Q DAY PO
     Route: 048
  4. DEBRIDAT [Suspect]
     Dosage: 100 MG Q DAY PO
     Route: 048
  5. RIVOTRIL [Suspect]
     Dosage: 0.5 MG Q DAY PO
     Route: 048
  6. MOPRAL [Suspect]
     Dosage: 40 MG Q DAY PO
     Route: 048
  7. IMOVANE [Concomitant]
  8. NITRIDERM [Concomitant]
  9. PLAVIX [Concomitant]

REACTIONS (4)
  - CONSTIPATION [None]
  - FAECALOMA [None]
  - INTESTINAL OBSTRUCTION [None]
  - VOMITING [None]
